FAERS Safety Report 9590734 (Version 1)
Quarter: 2013Q4

REPORT INFORMATION
  Report Type: Spontaneous
  Country: US (occurrence: US)
  Receive Date: 20131003
  Receipt Date: 20131003
  Transmission Date: 20140711
  Serious: No
  Sender: FDA-Public Use
  Company Number: US-AMGEN-USASP2012076611

PATIENT
  Sex: Female

DRUGS (6)
  1. ENBREL [Suspect]
     Indication: PRODUCT USED FOR UNKNOWN INDICATION
     Dosage: 50 MG/ML, ONCE A WEEK
     Route: 058
  2. PHENERGAN                          /00033001/ [Concomitant]
     Dosage: 25 MG, UNK
  3. XANAX [Concomitant]
     Dosage: 1 MG, UNK
  4. ZOFRAN [Concomitant]
     Dosage: 8 MG, UNK
  5. OXYCODONE [Concomitant]
     Dosage: 5 MG, UNK
  6. OPANA [Concomitant]
     Dosage: 10 MG, UNK

REACTIONS (4)
  - Condition aggravated [Unknown]
  - Insomnia [Unknown]
  - Feeling jittery [Unknown]
  - Nasopharyngitis [Unknown]
